FAERS Safety Report 4868960-2 (Version None)
Quarter: 2005Q4

REPORT INFORMATION
  Report Type: 
  Country: None (occurrence: None)
  Receive Date: 20051223
  Receipt Date: 20051215
  Transmission Date: 20060501
  Serious: Yes (Life-Threatening, Other)
  Sender: FDA-Public Use
  Company Number: 2005158708

PATIENT
  Sex: Female

DRUGS (4)
  1. NIFEDIPINE [Suspect]
     Indication: ILL-DEFINED DISORDER
     Dosage: 60 MG (DAILY)
  2. ATENOLOL [Suspect]
     Indication: HYPERTENSION
     Dosage: 50 MG (DAILY)
  3. RAMIPRIL [Suspect]
     Indication: HYPERTENSION
     Dosage: 50 MG (DAILY)
  4. HYDROXYCHLOROQUINE SULFATE [Suspect]
     Indication: ILL-DEFINED DISORDER
     Dosage: 200 MG (DAILY)

REACTIONS (10)
  - BLOOD CREATININE INCREASED [None]
  - BLOOD UREA INCREASED [None]
  - CAESAREAN SECTION [None]
  - DRUG EXPOSURE DURING PREGNANCY [None]
  - JAUNDICE NEONATAL [None]
  - NEONATAL RESPIRATORY DISTRESS SYNDROME [None]
  - OLIGOHYDRAMNIOS [None]
  - PREMATURE BABY [None]
  - RENAL FUNCTION TEST ABNORMAL [None]
  - UMBILICAL CORD ABNORMALITY [None]
